FAERS Safety Report 8427284-7 (Version None)
Quarter: 2012Q2

REPORT INFORMATION
  Report Type: 
  Country: None (occurrence: None)
  Receive Date: 20120611
  Receipt Date: 20120530
  Transmission Date: 20120825
  Serious: Yes (Death)
  Sender: FDA-Public Use
  Company Number: JP-GLAXOSMITHKLINE-B0805405A

PATIENT
  Sex: Female
  Weight: 62 kg

DRUGS (11)
  1. PREDNISOLONE [Concomitant]
     Dosage: 15MG PER DAY
     Route: 065
     Dates: start: 20111118
  2. PROMACTA [Suspect]
     Dosage: 12.5MG PER DAY
     Route: 048
     Dates: start: 20120511, end: 20120531
  3. PREDNISOLONE [Concomitant]
     Dosage: 7.5MG PER DAY
     Route: 065
     Dates: start: 20111216
  4. METHYLPREDNISOLONE [Concomitant]
     Route: 065
     Dates: start: 20120526, end: 20120528
  5. PREDNISOLONE [Concomitant]
     Dosage: 7MG PER DAY
     Route: 065
     Dates: start: 20120210
  6. PREDNISOLONE [Concomitant]
     Dosage: 10MG PER DAY
     Route: 065
     Dates: start: 20120511
  7. PROMACTA [Suspect]
     Indication: IDIOPATHIC THROMBOCYTOPENIC PURPURA
     Dosage: 12.5MG PER DAY
     Route: 048
     Dates: start: 20111107, end: 20111220
  8. PROMACTA [Suspect]
     Dosage: 12.5MG TWICE PER DAY
     Route: 048
     Dates: start: 20111221, end: 20120510
  9. PREDNISOLONE [Concomitant]
     Dosage: 30MG PER DAY
     Route: 065
     Dates: start: 20120518, end: 20120531
  10. PREDNISOLONE [Concomitant]
     Indication: IDIOPATHIC THROMBOCYTOPENIC PURPURA
     Dosage: 20MG PER DAY
     Route: 065
  11. PREDNISOLONE [Concomitant]
     Dosage: 10MG PER DAY
     Route: 065
     Dates: start: 20111202

REACTIONS (1)
  - SMALL CELL LUNG CANCER STAGE UNSPECIFIED [None]
